FAERS Safety Report 20544763 (Version 3)
Quarter: 2022Q2

REPORT INFORMATION
  Report Type: Other
  Country: GB (occurrence: GB)
  Receive Date: 20220303
  Receipt Date: 20220412
  Transmission Date: 20220721
  Serious: Yes (Other)
  Sender: FDA-Public Use
  Company Number: GB-CELLTRION INC.-2022GB002464

PATIENT

DRUGS (12)
  1. INFLIXIMAB [Suspect]
     Active Substance: INFLIXIMAB
     Indication: Product used for unknown indication
     Dosage: UNK
     Route: 065
  2. INFLIXIMAB [Suspect]
     Active Substance: INFLIXIMAB
     Dosage: UNK
     Route: 065
  3. INFLIXIMAB [Suspect]
     Active Substance: INFLIXIMAB
     Dosage: UNK
     Route: 065
  4. INFLIXIMAB [Suspect]
     Active Substance: INFLIXIMAB
     Dosage: UNK
     Route: 065
  5. SODIUM CHLORIDE [Suspect]
     Active Substance: SODIUM CHLORIDE
     Indication: Medication dilution
     Dosage: PHARMACEUTICAL DOSE FORM: 230
     Route: 065
  6. SODIUM CHLORIDE [Suspect]
     Active Substance: SODIUM CHLORIDE
     Dosage: PHARMACEUTICAL DOSE FORM: 230
     Route: 065
  7. SODIUM CHLORIDE [Suspect]
     Active Substance: SODIUM CHLORIDE
     Dosage: PHARMACEUTICAL DOSE FORM: 230
     Route: 065
  8. SODIUM CHLORIDE [Suspect]
     Active Substance: SODIUM CHLORIDE
     Dosage: PHARMACEUTICAL DOSE FORM: 230
     Route: 065
  9. WATER [Suspect]
     Active Substance: WATER
     Indication: Medication dilution
     Dosage: PHARMACEUTICAL DOSE FORM: 236
     Route: 065
  10. WATER [Suspect]
     Active Substance: WATER
     Dosage: PHARMACEUTICAL DOSE FORM: 236
     Route: 065
  11. WATER [Suspect]
     Active Substance: WATER
     Dosage: PHARMACEUTICAL DOSE FORM: 236
     Route: 065
  12. WATER [Suspect]
     Active Substance: WATER
     Dosage: PHARMACEUTICAL DOSE FORM: 236
     Route: 065

REACTIONS (5)
  - Panic attack [Unknown]
  - Pallor [Unknown]
  - Peripheral swelling [Unknown]
  - Pain in extremity [Unknown]
  - Dyspnoea [Unknown]

NARRATIVE: CASE EVENT DATE: 20220210
